FAERS Safety Report 7955496-5 (Version None)
Quarter: 2011Q4

REPORT INFORMATION
  Report Type: 
  Country: None (occurrence: None)
  Receive Date: 20111202
  Receipt Date: 20111129
  Transmission Date: 20120403
  Serious: Yes (Death, Other)
  Sender: FDA-Public Use
  Company Number: US-AMGEN-QUU423091

PATIENT
  Age: 78 Year
  Sex: Male
  Weight: 90 kg

DRUGS (5)
  1. LISINOPRIL AND HYDROCHLOROTHIAZIDE [Concomitant]
     Dosage: UNK UNK, QD
  2. NPLATE [Suspect]
     Indication: IDIOPATHIC THROMBOCYTOPENIC PURPURA
     Dosage: 90 MUG, UNK
     Dates: start: 20100324, end: 20100324
  3. UNSPECIFIED STEROIDS [Concomitant]
     Dosage: UNK UNK, UNK
     Route: 061
  4. CORTICOSTEROID NOS [Concomitant]
     Dosage: UNK UNK, UNK
     Dates: start: 20081114
  5. PROPRANOLOL [Concomitant]

REACTIONS (12)
  - GENERAL PHYSICAL HEALTH DETERIORATION [None]
  - SEPSIS [None]
  - PLATELET COUNT ABNORMAL [None]
  - EMBOLISM [None]
  - DEEP VEIN THROMBOSIS [None]
  - RESPIRATORY FAILURE [None]
  - CARDIO-RESPIRATORY ARREST [None]
  - PNEUMONIA [None]
  - THROMBOCYTOSIS [None]
  - STAPHYLOCOCCAL INFECTION [None]
  - MALAISE [None]
  - TRACHEOBRONCHITIS [None]
